FAERS Safety Report 9340790 (Version 1)
Quarter: 2013Q2

REPORT INFORMATION
  Report Type: Spontaneous
  Country: US (occurrence: US)
  Receive Date: 20130610
  Receipt Date: 20130610
  Transmission Date: 20140414
  Serious: No
  Sender: FDA-Public Use
  Company Number: US-ASTRAZENECA-2013SE37749

PATIENT
  Age: 52 Year
  Sex: Male
  Weight: 93 kg

DRUGS (2)
  1. NEXIUM [Suspect]
     Indication: HIATUS HERNIA
     Route: 048
     Dates: start: 2003
  2. NEXIUM [Suspect]
     Indication: HIATUS HERNIA
     Route: 048

REACTIONS (5)
  - Back pain [Unknown]
  - Muscle spasms [Unknown]
  - Back pain [Unknown]
  - Intentional drug misuse [Unknown]
  - Off label use [Unknown]
